FAERS Safety Report 13795522 (Version 1)
Quarter: 2017Q3

REPORT INFORMATION
  Report Type: Spontaneous
  Country: RO (occurrence: RO)
  Receive Date: 20170726
  Receipt Date: 20170726
  Transmission Date: 20171127
  Serious: Yes (Hospitalization)
  Sender: FDA-Public Use
  Company Number: RO-SA-2017SA133650

PATIENT
  Age: 50 Year
  Sex: Female

DRUGS (2)
  1. BCG FOR IMMUNOTHERAPY [Suspect]
     Active Substance: BACILLUS CALMETTE-GUERIN ANTIGEN, UNSPECIFIED SUBSTRAIN
     Indication: BLADDER CANCER
     Route: 043
  2. BCG FOR IMMUNOTHERAPY [Suspect]
     Active Substance: BACILLUS CALMETTE-GUERIN ANTIGEN, UNSPECIFIED SUBSTRAIN
     Indication: BLADDER CANCER
     Route: 043

REACTIONS (17)
  - Arthritis reactive [Recovering/Resolving]
  - Myalgia [Unknown]
  - Mobility decreased [Unknown]
  - Leukocytosis [Unknown]
  - Pyrexia [Recovering/Resolving]
  - Immune reconstitution inflammatory syndrome associated tuberculosis [Unknown]
  - Haematuria [Unknown]
  - Conjunctivitis [Unknown]
  - Cystitis bacterial [Unknown]
  - Tuberculosis [Recovering/Resolving]
  - Pollakiuria [Unknown]
  - Neutrophilia [Unknown]
  - Polyarthritis [Recovering/Resolving]
  - Arthritis bacterial [Recovering/Resolving]
  - Nausea [Unknown]
  - Thrombocytosis [Unknown]
  - Serratia infection [Unknown]
